FAERS Safety Report 5742464-7 (Version None)
Quarter: 2008Q2

REPORT INFORMATION
  Report Type: 
  Country: None (occurrence: None)
  Receive Date: 20080519
  Receipt Date: 20080508
  Transmission Date: 20081010
  Serious: Yes (Other)
  Sender: FDA-Public Use
  Company Number: US-JNJFOC-20080502331

PATIENT
  Sex: Female
  Weight: 48.99 kg

DRUGS (6)
  1. REMICADE [Suspect]
     Indication: CROHN'S DISEASE
     Dosage: 10 INFUSIONS ON UNKNOWN DATES
     Route: 042
  2. FLAGYL [Concomitant]
     Indication: CROHN'S DISEASE
     Dosage: FREQUENCY: 3 TIMES
  3. LEVAQUIN [Concomitant]
     Indication: CROHN'S DISEASE
     Dosage: DURATION:1 YEAR
  4. TRAMADOL HCL [Concomitant]
     Indication: CROHN'S DISEASE
     Dosage: DURATION: 2 WEEKS
  5. MOBIC [Concomitant]
     Indication: CROHN'S DISEASE
     Dosage: DURATION: 2 WEEKS
  6. CELEXA [Concomitant]
     Dosage: DURATION: 6 MONTHS

REACTIONS (4)
  - BLINDNESS [None]
  - DYSPNOEA [None]
  - INFUSION RELATED REACTION [None]
  - THROAT TIGHTNESS [None]
